FAERS Safety Report 10668489 (Version 1)
Quarter: 2014Q4

REPORT INFORMATION
  Report Type: Spontaneous
  Country: US (occurrence: None)
  Receive Date: 20141217
  Receipt Date: 20141217
  Transmission Date: 20150529
  Serious: No
  Sender: FDA-Public Use
  Company Number: 2014CT000133

PATIENT
  Age: 50 Year
  Sex: Female
  Weight: 73.48 kg

DRUGS (23)
  1. ASPIRIN. [Concomitant]
     Active Substance: ASPIRIN
  2. VITAMIN B12 [Concomitant]
     Active Substance: CYANOCOBALAMIN
  3. ZOFRAN /00955301/ [Concomitant]
     Active Substance: ONDANSETRON HYDROCHLORIDE
  4. MORPHINE [Concomitant]
     Active Substance: MORPHINE
  5. DIAZEPAM. [Concomitant]
     Active Substance: DIAZEPAM
  6. LANTUS [Concomitant]
     Active Substance: INSULIN GLARGINE
  7. KORLYM [Suspect]
     Active Substance: MIFEPRISTONE
     Indication: CUSHING^S SYNDROME
     Route: 048
     Dates: start: 2014
  8. BUPROPION [Concomitant]
     Active Substance: BUPROPION
  9. SPIRONOLACTONE. [Concomitant]
     Active Substance: SPIRONOLACTONE
  10. CLONAZEPAM. [Concomitant]
     Active Substance: CLONAZEPAM
  11. FLEXERIL [Concomitant]
     Active Substance: CYCLOBENZAPRINE HYDROCHLORIDE
  12. METOPROLOL [Concomitant]
     Active Substance: METOPROLOL
  13. DEXAMETHASONE. [Concomitant]
     Active Substance: DEXAMETHASONE
  14. NEXIUM [Concomitant]
     Active Substance: ESOMEPRAZOLE MAGNESIUM
  15. RIFAMPIN. [Concomitant]
     Active Substance: RIFAMPIN
  16. CLONIDINE. [Concomitant]
     Active Substance: CLONIDINE
  17. PRIALT [Concomitant]
     Active Substance: ZICONOTIDE ACETATE
  18. ADVAIR HFA [Concomitant]
     Active Substance: FLUTICASONE PROPIONATE\SALMETEROL XINAFOATE
  19. COMBIVENT [Concomitant]
     Active Substance: ALBUTEROL SULFATE\IPRATROPIUM BROMIDE
  20. HUMALOG [Concomitant]
     Active Substance: INSULIN LISPRO
  21. BUPIVACAINE [Concomitant]
     Active Substance: BUPIVACAINE
  22. DILAUDID [Concomitant]
     Active Substance: HYDROMORPHONE HYDROCHLORIDE
  23. PHENERGAN [Concomitant]
     Active Substance: PROMETHAZINE HYDROCHLORIDE

REACTIONS (4)
  - Gastrointestinal stoma output increased [None]
  - Malaise [None]
  - Abdominal discomfort [None]
  - Nausea [None]

NARRATIVE: CASE EVENT DATE: 201408
